FAERS Safety Report 8340253-0 (Version None)
Quarter: 2012Q2

REPORT INFORMATION
  Report Type: 
  Country: None (occurrence: None)
  Receive Date: 20120507
  Receipt Date: 20120427
  Transmission Date: 20120825
  Serious: Yes (Other)
  Sender: FDA-Public Use
  Company Number: CHPA2012US009606

PATIENT
  Sex: Female

DRUGS (4)
  1. VOLTAREN [Suspect]
     Indication: ARTHRITIS
     Dosage: UNK, BID
     Route: 061
  2. PLAVIX [Concomitant]
  3. DRUG THERAPY NOS [Concomitant]
     Dosage: 4 DF, QD
  4. VOLTAREN [Suspect]
     Dosage: UNK, ONCE
     Route: 061

REACTIONS (7)
  - TRANSIENT ISCHAEMIC ATTACK [None]
  - BRAIN OEDEMA [None]
  - DRUG DISPENSING ERROR [None]
  - BLOOD PRESSURE INCREASED [None]
  - DRUG ADMINISTERED AT INAPPROPRIATE SITE [None]
  - WRONG TECHNIQUE IN DRUG USAGE PROCESS [None]
  - THERAPEUTIC RESPONSE UNEXPECTED [None]
